FAERS Safety Report 6366574-9 (Version None)
Quarter: 2009Q3

REPORT INFORMATION
  Report Type: 
  Country: None (occurrence: None)
  Receive Date: 20090921
  Receipt Date: 20090909
  Transmission Date: 20100115
  Serious: Yes (Hospitalization, Other)
  Sender: FDA-Public Use
  Company Number: US-BAYER-200919940GPV

PATIENT
  Age: 74 Year
  Sex: Male
  Weight: 80 kg

DRUGS (8)
  1. SORAFENIB [Suspect]
     Indication: METASTATIC RENAL CELL CARCINOMA
     Dosage: TOTAL DAILY DOSE: 600 MG
     Route: 048
     Dates: start: 20080828, end: 20090325
  2. AMOXICILLIN [Concomitant]
     Indication: UROSEPSIS
     Route: 065
     Dates: start: 20090119, end: 20090324
  3. VENTOLIN [Concomitant]
     Indication: COUGH
     Route: 065
     Dates: start: 20081130
  4. DIPHENHYDRAMINE HCL [Concomitant]
     Indication: PRURITUS
     Dates: start: 20090331
  5. HYDROCODONE BITARTRATE [Concomitant]
     Indication: COUGH
     Dates: start: 20090404, end: 20090414
  6. BECLOMETHASONE DIPROPIONATE [Concomitant]
     Indication: COUGH
     Dates: start: 20090420
  7. HYDROMORPHONE [Concomitant]
     Indication: PAIN
     Dates: start: 20090422, end: 20090429
  8. DEXAMETHASONE [Concomitant]
     Indication: COUGH
     Dates: start: 20090501, end: 20090504

REACTIONS (6)
  - ABDOMINAL ABSCESS [None]
  - BACTERIAL INFECTION [None]
  - CELLULITIS [None]
  - CULTURE POSITIVE [None]
  - HYPERGLYCAEMIA [None]
  - RASH [None]
